FAERS Safety Report 8513798-8 (Version None)
Quarter: 2012Q3

REPORT INFORMATION
  Report Type: 
  Country: None (occurrence: None)
  Receive Date: 20120717
  Receipt Date: 20120703
  Transmission Date: 20120928
  Serious: Yes (Hospitalization, Other)
  Sender: FDA-Public Use
  Company Number: FR-UCBSA-057752

PATIENT
  Age: 80 Year
  Sex: Male

DRUGS (6)
  1. SINEMET [Concomitant]
     Dosage: CONTROLLED RELEASE, 200/50 MG
     Route: 048
     Dates: start: 20090101
  2. NEUPRO [Suspect]
     Indication: PARKINSON'S DISEASE
     Route: 062
     Dates: start: 20120521, end: 20120501
  3. NEUPRO [Suspect]
     Route: 062
     Dates: start: 20110101, end: 20120501
  4. NEXIUM [Concomitant]
     Dosage: 40 MG
  5. MOTILIUM [Concomitant]
     Dosage: 10 MG
  6. SINEMET [Concomitant]
     Indication: PARKINSON'S DISEASE
     Dosage: 100/10 MG
     Route: 048
     Dates: start: 20090101

REACTIONS (8)
  - SOMNOLENCE [None]
  - OEDEMA PERIPHERAL [None]
  - DECUBITUS ULCER [None]
  - FALL [None]
  - MUSCLE SPASMS [None]
  - NIGHTMARE [None]
  - DEEP VEIN THROMBOSIS [None]
  - EXTRAPYRAMIDAL DISORDER [None]
